FAERS Safety Report 8475424-6 (Version None)
Quarter: 2012Q2

REPORT INFORMATION
  Report Type: 
  Country: None (occurrence: None)
  Receive Date: 20120628
  Receipt Date: 20120626
  Transmission Date: 20120825
  Serious: Yes (Other)
  Sender: FDA-Public Use
  Company Number: GR-ROCHE-1082180

PATIENT
  Age: 57 Year
  Sex: Female

DRUGS (1)
  1. CLONAZEPAM [Suspect]
     Indication: EPILEPSY

REACTIONS (4)
  - VOMITING [None]
  - FATIGUE [None]
  - DIZZINESS [None]
  - SOMNOLENCE [None]
